FAERS Safety Report 9340517 (Version 1)
Quarter: 2013Q2

REPORT INFORMATION
  Report Type: Spontaneous
  Country: BR (occurrence: BR)
  Receive Date: 20130610
  Receipt Date: 20130610
  Transmission Date: 20140414
  Serious: Yes (Other)
  Sender: FDA-Public Use
  Company Number: BR-BRISTOL-MYERS SQUIBB COMPANY-16922007

PATIENT
  Age: 71 Year
  Sex: Male

DRUGS (1)
  1. SPRYCEL [Suspect]
     Dosage: ORAL TABS,2 TABS OF 50 MG.
     Route: 048

REACTIONS (4)
  - Pulmonary oedema [Recovered/Resolved]
  - Diabetes mellitus [Unknown]
  - Drug dose omission [Unknown]
  - Platelet count decreased [Unknown]
